FAERS Safety Report 21323008 (Version 2)
Quarter: 2022Q4

REPORT INFORMATION
  Report Type: Spontaneous
  Country: NL (occurrence: NL)
  Receive Date: 20220912
  Receipt Date: 20221011
  Transmission Date: 20230112
  Serious: Yes (Hospitalization, Other)
  Sender: FDA-Public Use
  Company Number: NL-ROCHE-3166575

PATIENT
  Age: 62 Year
  Sex: Male

DRUGS (5)
  1. BEVACIZUMAB [Suspect]
     Active Substance: BEVACIZUMAB
     Indication: Lung neoplasm malignant
     Dosage: 2490 MG, 2 CYCLES
     Route: 042
     Dates: start: 20220714
  2. BEVACIZUMAB [Suspect]
     Active Substance: BEVACIZUMAB
     Dosage: 2490 MG, 2 CYCLES
     Route: 042
     Dates: start: 20220714
  3. PACLITAXEL [Suspect]
     Active Substance: PACLITAXEL
     Indication: Lung neoplasm malignant
     Dosage: 852 MG, 2 CYCLES
     Route: 042
     Dates: start: 20220714
  4. CARBOPLATIN [Suspect]
     Active Substance: CARBOPLATIN
     Indication: Lung neoplasm malignant
     Dosage: 1470 MG, 2 CYCLES
     Route: 042
     Dates: start: 20220714
  5. ATEZOLIZUMAB [Suspect]
     Active Substance: ATEZOLIZUMAB
     Indication: Lung neoplasm malignant
     Dosage: 2400 MG, 2 CYCLES
     Route: 042
     Dates: start: 20220714

REACTIONS (1)
  - Pulmonary haemorrhage [Not Recovered/Not Resolved]

NARRATIVE: CASE EVENT DATE: 20220819
